FAERS Safety Report 6686559-2 (Version None)
Quarter: 2010Q2

REPORT INFORMATION
  Report Type: 
  Country: None (occurrence: None)
  Receive Date: 20100419
  Receipt Date: 20100409
  Transmission Date: 20101027
  Serious: Yes (Other)
  Sender: FDA-Public Use
  Company Number: US-ROCHE-697349

PATIENT
  Sex: Female

DRUGS (7)
  1. BONIVA [Suspect]
     Indication: OSTEOPOROSIS
     Route: 048
     Dates: start: 20070101, end: 20100402
  2. METHIMAZOLE [Concomitant]
  3. AMLODIPINE [Concomitant]
  4. CARVEDILOL [Concomitant]
  5. SIMVASTATIN [Concomitant]
  6. VITAMIN D3 [Concomitant]
  7. ASPIRIN [Concomitant]
     Dosage: DRUG NAME: BABY ASPIRIN

REACTIONS (2)
  - ANXIETY [None]
  - JAW DISORDER [None]
